FAERS Safety Report 16378734 (Version 1)
Quarter: 2019Q2

REPORT INFORMATION
  Report Type: Spontaneous
  Country: ES (occurrence: ES)
  Receive Date: 20190531
  Receipt Date: 20190531
  Transmission Date: 20190711
  Serious: Yes (Other)
  Sender: FDA-Public Use
  Company Number: ES-TEVA-2019-ES-1054688

PATIENT
  Age: 74 Year
  Sex: Male

DRUGS (1)
  1. OLMESARTAN 40 MG [Suspect]
     Active Substance: OLMESARTAN
     Route: 048

REACTIONS (13)
  - Tremor [Unknown]
  - Hypomagnesaemia [Recovering/Resolving]
  - Hypocalcaemia [Recovering/Resolving]
  - Erosive duodenitis [Unknown]
  - Enteritis [Unknown]
  - Nausea [Unknown]
  - Vomiting [Unknown]
  - Malabsorption [Recovering/Resolving]
  - Abdominal pain upper [Unknown]
  - Balance disorder [Unknown]
  - Weight decreased [Unknown]
  - Diarrhoea [Recovered/Resolved]
  - Dizziness [Unknown]
